FAERS Safety Report 8728324 (Version 2)
Quarter: 2013Q1

REPORT INFORMATION
  Report Type: Spontaneous
  Country: US (occurrence: US)
  Receive Date: 20120817
  Receipt Date: 20130124
  Transmission Date: 20140127
  Serious: Yes (Other)
  Sender: FDA-Public Use
  Company Number: US-BAYER-2012-082499

PATIENT
  Age: 18 Year
  Sex: Female

DRUGS (7)
  1. YASMIN [Suspect]
     Dosage: UNK
  2. BACTROBAN [Concomitant]
     Dosage: UNK
     Dates: start: 20071016
  3. SINGULAIR [Concomitant]
     Dosage: UNK
     Dates: start: 20071016
  4. FLONASE [Concomitant]
     Dosage: UNK
     Dates: start: 20071016
  5. ELIDEL [Concomitant]
     Dosage: UNK
     Dates: start: 20071016
  6. IBUPROFEN [Concomitant]
  7. AMOXICILLIN [Concomitant]

REACTIONS (3)
  - Deep vein thrombosis [Recovered/Resolved]
  - Deep vein thrombosis [None]
  - Thrombophlebitis superficial [None]
